FAERS Safety Report 15312947 (Version 2)
Quarter: 2018Q3

REPORT INFORMATION
  Report Type: Spontaneous
  Country: BR (occurrence: BR)
  Receive Date: 20180823
  Receipt Date: 20180830
  Transmission Date: 20181010
  Serious: Yes (Life-Threatening)
  Sender: FDA-Public Use
  Company Number: PHHY2018BR080179

PATIENT
  Age: 12 Year
  Sex: Male
  Weight: 34 kg

DRUGS (2)
  1. DAFORIN [Concomitant]
     Active Substance: FLUOXETINE HYDROCHLORIDE
     Indication: ANXIETY
     Dosage: 1 DF, QD
     Route: 065
  2. RITALINA [Suspect]
     Active Substance: METHYLPHENIDATE HYDROCHLORIDE
     Indication: ATTENTION DEFICIT/HYPERACTIVITY DISORDER
     Dosage: 1 DF, QD (AT NOON)
     Route: 048
     Dates: start: 20180721, end: 20180721

REACTIONS (5)
  - Musculoskeletal stiffness [Recovered/Resolved]
  - Malaise [Unknown]
  - Heart rate increased [Recovered/Resolved]
  - Drug hypersensitivity [Unknown]
  - Dyspnoea [Recovered/Resolved]

NARRATIVE: CASE EVENT DATE: 20180721
